FAERS Safety Report 24982139 (Version 1)
Quarter: 2025Q1

REPORT INFORMATION
  Report Type: Spontaneous
  Country: US (occurrence: None)
  Receive Date: 20250216
  Receipt Date: 20250216
  Transmission Date: 20250409
  Serious: Yes (Disabling)
  Sender: FDA-CTU
  Company Number: None

PATIENT
  Age: 77 Year
  Sex: Female
  Weight: 40.95 kg

DRUGS (9)
  1. BUSPIRONE [Suspect]
     Active Substance: BUSPIRONE HYDROCHLORIDE
     Indication: Anxiety
  2. ALENDRONATE [Concomitant]
     Active Substance: ALENDRONATE SODIUM
  3. VENLAFAXINE [Concomitant]
     Active Substance: VENLAFAXINE HYDROCHLORIDE
  4. CARBIDOPA [Concomitant]
     Active Substance: CARBIDOPA
  5. LEVODOPA [Concomitant]
     Active Substance: LEVODOPA
  6. VITAMINS [Concomitant]
     Active Substance: VITAMINS
  7. CALCIUM [Concomitant]
     Active Substance: CALCIUM
  8. VITAMIN D3 [Concomitant]
     Active Substance: CHOLECALCIFEROL
  9. COLACE [Concomitant]
     Active Substance: DOCUSATE SODIUM

REACTIONS (2)
  - Impaired gastric emptying [None]
  - Constipation [None]

NARRATIVE: CASE EVENT DATE: 20250101
